FAERS Safety Report 8914205 (Version 4)
Quarter: 2013Q1

REPORT INFORMATION
  Report Type: Spontaneous
  Country: US (occurrence: US)
  Receive Date: 20121119
  Receipt Date: 20130104
  Transmission Date: 20140127
  Serious: No
  Sender: FDA-Public Use
  Company Number: US-PFIZER INC-2012259553

PATIENT
  Age: 47 Year
  Sex: Female
  Weight: 91 kg

DRUGS (6)
  1. VISTARIL [Suspect]
     Indication: ANXIETY
     Dosage: 25 MG, 3X/DAY
     Route: 048
     Dates: start: 2012
  2. ZOLOFT [Suspect]
     Indication: DEPRESSION
     Dosage: 1 100 MG TABLET AND A HALF, DAILY
     Route: 048
  3. PRAVASTATIN [Concomitant]
     Indication: BLOOD CHOLESTEROL INCREASED
     Dosage: 20 MG, DAILY
  4. RANITIDINE [Concomitant]
     Dosage: UNK
  5. TRAZODONE [Concomitant]
     Dosage: UNK
  6. BENADRYL [Concomitant]
     Dosage: UNK

REACTIONS (2)
  - Intentional drug misuse [Unknown]
  - Drug withdrawal syndrome [Unknown]
